FAERS Safety Report 16648801 (Version 2)
Quarter: 2019Q3

REPORT INFORMATION
  Report Type: Spontaneous
  Country: DE (occurrence: DE)
  Receive Date: 20190730
  Receipt Date: 20190906
  Transmission Date: 20191004
  Serious: Yes (Life-Threatening, Other)
  Sender: FDA-Public Use
  Company Number: DE-BAUSCH-BL-2019-021810

PATIENT
  Age: 70 Year
  Sex: Female
  Weight: 53 kg

DRUGS (3)
  1. MOVIPREP [Suspect]
     Active Substance: ASCORBIC ACID\POLYETHYLENE GLYCOL 3350\POTASSIUM CHLORIDE\SODIUM ASCORBATE\SODIUM CHLORIDE\SODIUM SULFATE
     Indication: BOWEL PREPARATION
     Dosage: SINGLE (ONE TIME ADMINISTRATION)
     Route: 048
     Dates: start: 20190626, end: 20190626
  2. DAOSIN [Concomitant]
     Indication: PRODUCT USED FOR UNKNOWN INDICATION
     Dates: start: 2000
  3. TAVEGIL [Concomitant]
     Active Substance: CLEMASTINE FUMARATE
     Indication: PRODUCT USED FOR UNKNOWN INDICATION
     Dates: start: 2000

REACTIONS (25)
  - Faecal volume increased [Not Recovered/Not Resolved]
  - Urine output [Not Recovered/Not Resolved]
  - Retching [Unknown]
  - Dizziness [Unknown]
  - Product use complaint [Unknown]
  - Tremor [Not Recovered/Not Resolved]
  - Feeling abnormal [Not Recovered/Not Resolved]
  - Eructation [Unknown]
  - Muscle spasms [Not Recovered/Not Resolved]
  - Abnormal faeces [Not Recovered/Not Resolved]
  - Apparent death [Unknown]
  - Feeling cold [Unknown]
  - Nausea [Unknown]
  - Abdominal pain upper [Unknown]
  - Blood pressure increased [Unknown]
  - Frequent bowel movements [Unknown]
  - Somnolence [Not Recovered/Not Resolved]
  - Speech disorder [Not Recovered/Not Resolved]
  - Skin erosion [Not Recovered/Not Resolved]
  - Chills [Unknown]
  - Malaise [Unknown]
  - Headache [Unknown]
  - Dehydration [Unknown]
  - Circulatory collapse [Not Recovered/Not Resolved]
  - Cyanosis [Not Recovered/Not Resolved]

NARRATIVE: CASE EVENT DATE: 201906
